FAERS Safety Report 9131327 (Version 1)
Quarter: 2013Q1

REPORT INFORMATION
  Report Type: Spontaneous
  Country: US (occurrence: US)
  Receive Date: 20130301
  Receipt Date: 20130301
  Transmission Date: 20140127
  Serious: No
  Sender: FDA-Public Use
  Company Number: US-BAYER-2013-025967

PATIENT
  Age: 33 Year
  Sex: Female
  Weight: 77.1 kg

DRUGS (1)
  1. ALEVE CAPLET/TABLET,MIDOL EXTENDED RELIEF CAPLET [Suspect]
     Indication: PAIN
     Dosage: 1 DF, PRN
     Route: 048
     Dates: start: 2003

REACTIONS (1)
  - Therapeutic response unexpected [None]
